FAERS Safety Report 11823904 (Version 1)
Quarter: 2015Q4

REPORT INFORMATION
  Report Type: Report from Study
  Country: US (occurrence: US)
  Receive Date: 20151210
  Receipt Date: 20151210
  Transmission Date: 20160305
  Serious: Yes (Other)
  Sender: FDA-Public Use
  Company Number: US-ABBVIE-15P-163-1513844-00

PATIENT
  Age: 37 Year
  Sex: Female

DRUGS (5)
  1. PRENATAL VITAMINS [Concomitant]
     Active Substance: VITAMINS
     Indication: VITAMIN SUPPLEMENTATION
  2. HUMIRA [Suspect]
     Active Substance: ADALIMUMAB
     Indication: RHEUMATOID ARTHRITIS
     Dosage: PFS
     Route: 058
     Dates: start: 2002
  3. HUMIRA [Suspect]
     Active Substance: ADALIMUMAB
     Indication: RHEUMATOID ARTHRITIS
     Dosage: PEN
     Route: 058
     Dates: end: 2014
  4. DHA [Concomitant]
     Active Substance: DIETARY SUPPLEMENT
     Indication: VITAMIN SUPPLEMENTATION
  5. HUMIRA [Suspect]
     Active Substance: ADALIMUMAB
     Dosage: PEN
     Route: 058
     Dates: start: 2014, end: 201501

REACTIONS (3)
  - Premature labour [Not Recovered/Not Resolved]
  - High risk pregnancy [Unknown]
  - Exposure during pregnancy [Unknown]

NARRATIVE: CASE EVENT DATE: 201509
